FAERS Safety Report 7389673-1 (Version None)
Quarter: 2011Q2

REPORT INFORMATION
  Report Type: 
  Country: None (occurrence: None)
  Receive Date: 20110401
  Receipt Date: 20110329
  Transmission Date: 20111010
  Serious: Yes (Hospitalization)
  Sender: FDA-Public Use
  Company Number: JP-MERCK-1103USA01132

PATIENT
  Age: 91 Year
  Sex: Male

DRUGS (3)
  1. CHLORPROMAZINE [Concomitant]
     Route: 048
  2. DONEPEZIL HYDROCHLORIDE [Suspect]
     Route: 048
  3. PEPCID [Suspect]
     Route: 048

REACTIONS (9)
  - BLOOD ALKALINE PHOSPHATASE INCREASED [None]
  - GAMMA-GLUTAMYLTRANSFERASE INCREASED [None]
  - MALAISE [None]
  - LYMPHOCYTE STIMULATION TEST POSITIVE [None]
  - LIVER DISORDER [None]
  - ASPARTATE AMINOTRANSFERASE INCREASED [None]
  - ALANINE AMINOTRANSFERASE INCREASED [None]
  - EOSINOPHIL COUNT INCREASED [None]
  - DECREASED APPETITE [None]
